FAERS Safety Report 21664260 (Version 1)
Quarter: 2022Q4

REPORT INFORMATION
  Report Type: Spontaneous
  Country: US (occurrence: None)
  Receive Date: 20221130
  Receipt Date: 20221130
  Transmission Date: 20230113
  Serious: Yes (Hospitalization, Disabling)
  Sender: FDA-Public Use
  Company Number: None

PATIENT
  Age: 35 Year
  Sex: Female
  Weight: 92.7 kg

DRUGS (1)
  1. HAILEY FE 1/20 [Suspect]
     Active Substance: ETHINYL ESTRADIOL\NORETHINDRONE ACETATE
     Indication: Contraception
     Dosage: OTHER QUANTITY : 21 TABLET(S);?FREQUENCY : DAILY;?
     Route: 048
     Dates: start: 20221016, end: 20221121

REACTIONS (9)
  - Anxiety [None]
  - Panic attack [None]
  - Crying [None]
  - Mood altered [None]
  - Abdominal pain upper [None]
  - Nausea [None]
  - Vomiting [None]
  - Dehydration [None]
  - Ketosis [None]

NARRATIVE: CASE EVENT DATE: 20221107
